FAERS Safety Report 12716928 (Version 1)
Quarter: 2016Q3

REPORT INFORMATION
  Report Type: Spontaneous
  Country: US (occurrence: US)
  Receive Date: 20160906
  Receipt Date: 20160906
  Transmission Date: 20161109
  Serious: Yes (Other)
  Sender: FDA-Public Use
  Company Number: US-PFIZER INC-2016413294

PATIENT
  Age: 41 Year
  Sex: Female

DRUGS (2)
  1. DEPO-PROVERA [Suspect]
     Active Substance: MEDROXYPROGESTERONE ACETATE
     Indication: DYSMENORRHOEA
     Dates: start: 20151106
  2. DEPO-PROVERA [Suspect]
     Active Substance: MEDROXYPROGESTERONE ACETATE
     Indication: MENORRHAGIA

REACTIONS (16)
  - Suicidal ideation [Recovered/Resolved]
  - Condition aggravated [Recovering/Resolving]
  - Psychomotor hyperactivity [Unknown]
  - Thinking abnormal [Recovering/Resolving]
  - Weight decreased [Unknown]
  - Depression [Recovering/Resolving]
  - Hypersomnia [Unknown]
  - Feeling abnormal [Unknown]
  - Partial seizures [Recovering/Resolving]
  - Insomnia [Unknown]
  - Product use issue [Unknown]
  - Abnormal behaviour [Recovering/Resolving]
  - Impulsive behaviour [Recovering/Resolving]
  - Suicide attempt [Unknown]
  - Abasia [Not Recovered/Not Resolved]
  - Muscle spasms [Unknown]

NARRATIVE: CASE EVENT DATE: 201511
